FAERS Safety Report 5702988-5 (Version None)
Quarter: 2008Q2

REPORT INFORMATION
  Report Type: 
  Country: None (occurrence: None)
  Receive Date: 20080408
  Receipt Date: 20080326
  Transmission Date: 20081010
  Serious: Yes (Other)
  Sender: FDA-Public Use
  Company Number: 232689J08USA

PATIENT
  Age: 50 Year
  Sex: Female
  Weight: 77.1115 kg

DRUGS (4)
  1. REBIF [Suspect]
     Indication: MULTIPLE SCLEROSIS
     Dosage: 44 MCG, 3 IN 1 WEEKS, SUBCUTANEOUS
     Route: 058
     Dates: start: 20070911, end: 20080312
  2. TOPAMAX [Concomitant]
  3. FIORICET(AXOTAL) [Concomitant]
  4. PROVERA [Concomitant]

REACTIONS (3)
  - ARTERIOSCLEROSIS [None]
  - HYPERTENSION [None]
  - MYOCARDIAL ISCHAEMIA [None]
